FAERS Safety Report 11643658 (Version 1)
Quarter: 2015Q4

REPORT INFORMATION
  Report Type: Spontaneous
  Country: US (occurrence: US)
  Receive Date: 20151020
  Receipt Date: 20151020
  Transmission Date: 20160304
  Serious: No
  Sender: FDA-Public Use
  Company Number: US-009507513-1510USA004184

PATIENT
  Age: 70 Year
  Sex: Female

DRUGS (3)
  1. IPRATROPIUM BROMIDE (WARRICK) [Concomitant]
     Active Substance: IPRATROPIUM BROMIDE
  2. NASONEX [Suspect]
     Active Substance: MOMETASONE FUROATE
     Indication: ANTIALLERGIC THERAPY
     Dosage: 50 MCG / ONE PUFF IN EACH NOSTRIL TWICE A DAY
     Route: 045
  3. ASMANEX [Concomitant]
     Active Substance: MOMETASONE FUROATE

REACTIONS (3)
  - Drug dose omission [Unknown]
  - Headache [Not Recovered/Not Resolved]
  - Head discomfort [Not Recovered/Not Resolved]

NARRATIVE: CASE EVENT DATE: 20150923
